FAERS Safety Report 11193883 (Version 1)
Quarter: 2015Q2

REPORT INFORMATION
  Report Type: Spontaneous
  Country: US (occurrence: US)
  Receive Date: 20150616
  Receipt Date: 20150616
  Transmission Date: 20150821
  Serious: No
  Sender: FDA-Public Use
  Company Number: US-TAKEDA-2014MPI002556

PATIENT
  Age: 74 Year
  Sex: Male

DRUGS (1)
  1. VELCADE [Suspect]
     Active Substance: BORTEZOMIB
     Indication: MANTLE CELL LYMPHOMA
     Dosage: 3.3 MG, ON DAYS 1 AND 8, EVERY 4 WEEKS
     Route: 058
     Dates: start: 20140821

REACTIONS (1)
  - Product reconstitution issue [Unknown]

NARRATIVE: CASE EVENT DATE: 20140821
